FAERS Safety Report 21953701 (Version 1)
Quarter: 2023Q1

REPORT INFORMATION
  Report Type: Report from Study
  Country: US (occurrence: US)
  Receive Date: 20230204
  Receipt Date: 20230204
  Transmission Date: 20230418
  Serious: No
  Sender: FDA-Public Use
  Company Number: US-ACORDA-ACO_172409_2022

PATIENT
  Sex: Female

DRUGS (1)
  1. AMPYRA [Suspect]
     Active Substance: DALFAMPRIDINE
     Indication: Product used for unknown indication
     Dosage: 10 MILLIGRAM, Q 12 HRS
     Route: 048
     Dates: start: 20160812

REACTIONS (6)
  - Ankylosing spondylitis [Unknown]
  - Incontinence [Unknown]
  - Disturbance in attention [Unknown]
  - Dizziness [Unknown]
  - Back pain [Unknown]
  - Paraesthesia [Unknown]
